FAERS Safety Report 8021923-0 (Version None)
Quarter: 2012Q1

REPORT INFORMATION
  Report Type: 
  Country: None (occurrence: None)
  Receive Date: 20120104
  Receipt Date: 20111223
  Transmission Date: 20120608
  Serious: Yes (Other)
  Sender: FDA-Public Use
  Company Number: BR-BAYER-2012-000624

PATIENT
  Age: 24 Year
  Sex: Female
  Weight: 70 kg

DRUGS (2)
  1. AVELOX [Suspect]
     Dosage: 1 DF, QD
     Route: 048
     Dates: start: 20111215
  2. ALLEGRA [Concomitant]
     Indication: RHINITIS
     Dosage: 60 MG, QD
     Route: 048

REACTIONS (4)
  - ORAL MUCOSAL ERUPTION [None]
  - WOUND [None]
  - TONGUE ERUPTION [None]
  - DYSGEUSIA [None]
